FAERS Safety Report 10088288 (Version 1)
Quarter: 2014Q2

REPORT INFORMATION
  Report Type: Spontaneous
  Country: US (occurrence: US)
  Receive Date: 20140421
  Receipt Date: 20140421
  Transmission Date: 20141212
  Serious: No
  Sender: FDA-Public Use
  Company Number: US-BIOGENIDEC-2013BI046653

PATIENT
  Age: 48 Year
  Sex: Female

DRUGS (3)
  1. TECFIDERA [Suspect]
     Indication: MULTIPLE SCLEROSIS
     Route: 048
     Dates: start: 20130511, end: 20130517
  2. TECFIDERA [Suspect]
     Indication: MULTIPLE SCLEROSIS
     Route: 048
     Dates: start: 20130517
  3. TECFIDERA [Suspect]
     Indication: MULTIPLE SCLEROSIS
     Route: 048
     Dates: start: 20130518

REACTIONS (9)
  - Gastrooesophageal reflux disease [Not Recovered/Not Resolved]
  - Dizziness [Recovered/Resolved]
  - Abdominal distension [Not Recovered/Not Resolved]
  - Fear [Unknown]
  - Abdominal discomfort [Not Recovered/Not Resolved]
  - Nausea [Not Recovered/Not Resolved]
  - Diarrhoea [Recovered/Resolved]
  - Flushing [Not Recovered/Not Resolved]
  - Rash [Unknown]
